FAERS Safety Report 13493196 (Version 1)
Quarter: 2017Q2

REPORT INFORMATION
  Report Type: Spontaneous
  Country: US (occurrence: US)
  Receive Date: 20170427
  Receipt Date: 20170427
  Transmission Date: 20170830
  Serious: No
  Sender: FDA-Public Use
  Company Number: US-ROCHE-1340407

PATIENT
  Age: 66 Year
  Sex: Male

DRUGS (4)
  1. SPIRONOLACTONE. [Concomitant]
     Active Substance: SPIRONOLACTONE
  2. ERIVEDGE [Suspect]
     Active Substance: VISMODEGIB
     Indication: PRODUCT USED FOR UNKNOWN INDICATION
     Route: 048
     Dates: start: 20130130
  3. HYDRALAZINE [Concomitant]
     Active Substance: HYDRALAZINE HYDROCHLORIDE
  4. LISINOPRIL. [Concomitant]
     Active Substance: LISINOPRIL

REACTIONS (3)
  - Vocal cord paresis [Unknown]
  - Dysphagia [Not Recovered/Not Resolved]
  - Choking [Not Recovered/Not Resolved]

NARRATIVE: CASE EVENT DATE: 20130130
